FAERS Safety Report 16084520 (Version 1)
Quarter: 2019Q1

REPORT INFORMATION
  Report Type: Report from Study
  Country: US (occurrence: US)
  Receive Date: 20190318
  Receipt Date: 20190318
  Transmission Date: 20190418
  Serious: Yes (Hospitalization)
  Sender: FDA-Public Use
  Company Number: US-JNJFOC-20190320634

PATIENT
  Age: 57 Year
  Sex: Male

DRUGS (2)
  1. IMBRUVICA [Suspect]
     Active Substance: IBRUTINIB
     Indication: LYMPHOCYTIC LEUKAEMIA
     Route: 048
     Dates: start: 20190220
  2. IMBRUVICA [Suspect]
     Active Substance: IBRUTINIB
     Indication: LYMPHOCYTIC LEUKAEMIA
     Route: 048
     Dates: start: 20180420

REACTIONS (5)
  - Chest pain [Unknown]
  - Abdominal pain [Unknown]
  - Muscle spasms [Unknown]
  - Prostatic specific antigen increased [Unknown]
  - Sinusitis [Unknown]

NARRATIVE: CASE EVENT DATE: 201812
